FAERS Safety Report 24453997 (Version 2)
Quarter: 2024Q4

REPORT INFORMATION
  Report Type: Report from Study
  Country: US (occurrence: US)
  Receive Date: 20241017
  Receipt Date: 20241018
  Transmission Date: 20250115
  Serious: No
  Sender: ROCHE
  Company Number: US-ROCHE-3459502

PATIENT
  Age: 65 Year
  Sex: Female
  Weight: 55.34 kg

DRUGS (2)
  1. RITUXAN [Suspect]
     Active Substance: RITUXIMAB
     Indication: Thrombotic thrombocytopenic purpura
     Dosage: SLOW DRIP, OVER 6 HOURS?MOST RECENT DOSE WAS ON 26/MAY/2023
     Route: 042
  2. IRON [Concomitant]
     Active Substance: IRON
     Indication: Thrombotic thrombocytopenic purpura

REACTIONS (3)
  - Off label use [Unknown]
  - Weight decreased [Not Recovered/Not Resolved]
  - Osteopenia [Not Recovered/Not Resolved]

NARRATIVE: CASE EVENT DATE: 20230901
